FAERS Safety Report 13109820 (Version 1)
Quarter: 2017Q1

REPORT INFORMATION
  Report Type: Spontaneous
  Country: US (occurrence: US)
  Receive Date: 20170112
  Receipt Date: 20170112
  Transmission Date: 20170428
  Serious: Yes (Other)
  Sender: FDA-Public Use
  Company Number: US-ROCHE-1100531

PATIENT
  Sex: Male

DRUGS (15)
  1. ACTIVASE [Suspect]
     Active Substance: ALTEPLASE
     Route: 042
  2. LIDOCAIN [Concomitant]
     Active Substance: LIDOCAINE
     Route: 065
  3. ZANTAC [Concomitant]
     Active Substance: RANITIDINE HYDROCHLORIDE
     Route: 065
  4. CAPOTEN [Concomitant]
     Active Substance: CAPTOPRIL
     Route: 065
  5. ACTIVASE [Suspect]
     Active Substance: ALTEPLASE
     Indication: CARDIOGENIC SHOCK
     Route: 042
  6. REGLAN [Concomitant]
     Active Substance: METOCLOPRAMIDE HYDROCHLORIDE
     Route: 065
  7. HEPARIN [Concomitant]
     Active Substance: HEPARIN SODIUM
     Dosage: 20000 U
     Route: 065
  8. LIDOCAIN [Concomitant]
     Active Substance: LIDOCAINE
     Route: 040
  9. NITRO [Concomitant]
     Active Substance: NITROGLYCERIN
     Route: 065
  10. ATIVAN [Concomitant]
     Active Substance: LORAZEPAM
     Route: 065
  11. ACTIVASE [Suspect]
     Active Substance: ALTEPLASE
     Indication: MYOCARDIAL INFARCTION
     Route: 040
  12. HEPARIN [Concomitant]
     Active Substance: HEPARIN SODIUM
     Dosage: 5000 U
     Route: 065
  13. MS [Concomitant]
     Active Substance: MORPHINE SULFATE
     Route: 042
  14. ASA [Concomitant]
     Active Substance: ASPIRIN
  15. LOPRESSOR [Concomitant]
     Active Substance: METOPROLOL TARTRATE
     Route: 065

REACTIONS (5)
  - Sinus bradycardia [Unknown]
  - Extrasystoles [Unknown]
  - Ventricular extrasystoles [Unknown]
  - Arrhythmia [Unknown]
  - Ventricular tachycardia [Unknown]
